FAERS Safety Report 4524308-4 (Version None)
Quarter: 2004Q4

REPORT INFORMATION
  Report Type: 
  Country: None (occurrence: None)
  Receive Date: 20041119
  Receipt Date: 20040824
  Transmission Date: 20050328
  Serious: Yes (Other)
  Sender: FDA-Public Use
  Company Number: 208541

PATIENT
  Age: 46 Year
  Sex: Female
  Weight: 90.7 kg

DRUGS (4)
  1. RAPTIVA [Suspect]
     Indication: PSORIATIC ARTHROPATHY
     Dosage: SEE IMAGE
     Route: 058
     Dates: start: 20040516, end: 20040516
  2. RAPTIVA [Suspect]
     Indication: PSORIATIC ARTHROPATHY
     Dosage: SEE IMAGE
     Route: 058
     Dates: start: 20040501, end: 20040719
  3. LIPITOR 9ATORVASTATIN CALCIUM) [Concomitant]
  4. FEMHRT [Concomitant]

REACTIONS (1)
  - ARTHRITIS [None]
